FAERS Safety Report 5042043-3 (Version None)
Quarter: 2006Q2

REPORT INFORMATION
  Report Type: 
  Country: None (occurrence: None)
  Receive Date: 20060627
  Receipt Date: 20060614
  Transmission Date: 20061013
  Serious: Yes (Life-Threatening, Hospitalization)
  Sender: FDA-Public Use
  Company Number: 146216USA

PATIENT
  Age: 42 Year
  Sex: Male

DRUGS (3)
  1. FLUOROURACIL [Suspect]
     Indication: GASTRIC CANCER
     Dates: start: 20060309
  2. CISPLATIN [Suspect]
     Indication: GASTRIC CANCER
     Dosage: 200 MILLIGRAM INTRAVENOUS DRIP
     Route: 041
     Dates: start: 20060309
  3. VICODIN [Concomitant]

REACTIONS (7)
  - CONSTIPATION [None]
  - CULTURE WOUND POSITIVE [None]
  - GASTROINTESTINAL PERFORATION [None]
  - KLEBSIELLA INFECTION [None]
  - OESOPHAGEAL CARCINOMA [None]
  - STREPTOCOCCAL INFECTION [None]
  - TUMOUR PERFORATION [None]
